FAERS Safety Report 4410796-0 (Version None)
Quarter: 2004Q2

REPORT INFORMATION
  Report Type: 
  Country: None (occurrence: None)
  Receive Date: 20040630
  Receipt Date: 20040414
  Transmission Date: 20050107
  Serious: No
  Sender: FDA-Public Use
  Company Number: 04P-163-0257483-00

PATIENT
  Age: 57 Year
  Sex: Female
  Weight: 90.7194 kg

DRUGS (9)
  1. HUMIRA [Suspect]
     Indication: RHEUMATOID ARTHRITIS
     Dosage: 40 MG, 1 IN 2 WK, SUBCUTANEOUS
     Route: 058
     Dates: start: 20040106, end: 20040217
  2. HUMIRA [Suspect]
     Indication: RHEUMATOID ARTHRITIS
     Dosage: 40 MG, 1 IN 2 WK, SUBCUTANEOUS
     Route: 058
     Dates: start: 20040224
  3. AMOXICILLIN [Suspect]
     Indication: INFLUENZA
     Dates: start: 20040210, end: 20040216
  4. RANITIDINE HYDROCHLORIDE [Concomitant]
  5. LORAZEPAM [Concomitant]
  6. FOLIC ACID [Concomitant]
  7. ASCORBIC ACID [Concomitant]
  8. ERGOCALCIFEROL [Concomitant]
  9. METHOTREXATE [Concomitant]

REACTIONS (3)
  - INFLUENZA [None]
  - PRURITUS GENERALISED [None]
  - RASH PRURITIC [None]
